FAERS Safety Report 5565302-4 (Version None)
Quarter: 2007Q4

REPORT INFORMATION
  Report Type: 
  Country: None (occurrence: None)
  Receive Date: 20071218
  Receipt Date: 20021125
  Transmission Date: 20080405
  Serious: Yes (Death, Hospitalization)
  Sender: FDA-Public Use
  Company Number: CH-ROCHE-326158

PATIENT
  Age: 73 Year
  Sex: Male

DRUGS (12)
  1. CEFTRIAXONE [Suspect]
     Indication: INFECTION PROPHYLAXIS
     Route: 065
  2. GENTAMICIN [Suspect]
     Indication: INFECTION
     Route: 042
  3. METRONIDAZOLE [Suspect]
     Indication: INFECTION PROPHYLAXIS
     Route: 065
  4. VANCOMYCIN [Suspect]
     Route: 042
  5. INSULIN [Concomitant]
  6. ISOSORBIDE DINITRATE [Concomitant]
  7. ACETYLSALICYLIC ACID SRT [Concomitant]
  8. OMEPRAZOLE [Concomitant]
  9. LORAZEPAM [Concomitant]
  10. THIORIDAZINE [Concomitant]
  11. TORSEMIDE [Concomitant]
  12. SPIRONOLACTONE [Concomitant]

REACTIONS (3)
  - ACQUIRED EPIDERMOLYSIS BULLOSA [None]
  - CHOLESTASIS [None]
  - HEPATIC FUNCTION ABNORMAL [None]
